FAERS Safety Report 18355617 (Version 1)
Quarter: 2020Q4

REPORT INFORMATION
  Report Type: Spontaneous
  Country: US (occurrence: US)
  Receive Date: 20201007
  Receipt Date: 20201007
  Transmission Date: 20210114
  Serious: Yes (Other)
  Sender: FDA-Public Use
  Company Number: None

PATIENT
  Age: 55 Year
  Sex: Female
  Weight: 75.6 kg

DRUGS (1)
  1. PERRIGO ALBUTEROL SULFATE INHALATION AEROSOL 8.5 G 200 METERED DOSES [Suspect]
     Active Substance: ALBUTEROL SULFATE
     Indication: ASTHMA
     Dosage: ?          QUANTITY:200 INHALATION(S);?
     Route: 055

REACTIONS (3)
  - Incorrect dose administered by device [None]
  - Asthma [None]
  - Device malfunction [None]

NARRATIVE: CASE EVENT DATE: 20200824
